FAERS Safety Report 4993245-3 (Version None)
Quarter: 2006Q1

REPORT INFORMATION
  Report Type: 
  Country: None (occurrence: None)
  Receive Date: 20060314
  Receipt Date: 20050215
  Transmission Date: 20060701
  Serious: Yes (Other)
  Sender: FDA-Public Use
  Company Number: 2005010421BCC

PATIENT
  Age: 62 Year
  Sex: Female
  Weight: 65.7716 kg

DRUGS (4)
  1. ALEVE [Suspect]
     Dosage: 440 MG, ONCE, ORAL
     Route: 048
     Dates: start: 20050130
  2. CLARITIN [Suspect]
  3. ZOCOR [Concomitant]
  4. HIGH BLOOD PRESSURE MEDICATION [Concomitant]

REACTIONS (5)
  - HYPERSENSITIVITY [None]
  - PRURITUS [None]
  - RASH [None]
  - SWELLING [None]
  - URTICARIA [None]
